FAERS Safety Report 8276202-3 (Version None)
Quarter: 2012Q2

REPORT INFORMATION
  Report Type: 
  Country: None (occurrence: None)
  Receive Date: 20120412
  Receipt Date: 20120404
  Transmission Date: 20120825
  Serious: Yes (Other)
  Sender: FDA-Public Use
  Company Number: JP-ASTELLAS-2012JP002946

PATIENT
  Age: 26 Year
  Sex: Female

DRUGS (5)
  1. BUSULFAN [Concomitant]
     Route: 065
  2. FLUDARABINE PHOSPHATE [Concomitant]
     Route: 065
  3. MELPHALAN HYDROCHLORIDE [Concomitant]
     Route: 065
  4. PROGRAF [Suspect]
     Indication: PROPHYLAXIS AGAINST GRAFT VERSUS HOST DISEASE
     Route: 065
  5. ANTI-THYMOCYTE GLOBULIN EQUINE NOS [Concomitant]
     Route: 065

REACTIONS (3)
  - DRUG INEFFECTIVE [None]
  - THROMBOTIC MICROANGIOPATHY [None]
  - ACUTE GRAFT VERSUS HOST DISEASE [None]
